FAERS Safety Report 6844487-3 (Version None)
Quarter: 2010Q3

REPORT INFORMATION
  Report Type: 
  Country: None (occurrence: None)
  Receive Date: 20100713
  Receipt Date: 20100527
  Transmission Date: 20110219
  Serious: No
  Sender: FDA-Public Use
  Company Number: 2010060008

PATIENT
  Age: 49 Year
  Sex: Female

DRUGS (3)
  1. ONSOLIS [Suspect]
     Indication: ARTHRALGIA
     Dosage: (TITRATED TO 4-200 MCG Q 6
     Dates: start: 20100409, end: 20100422
  2. ACTIQ [Concomitant]
  3. OXYCONTIN [Concomitant]

REACTIONS (2)
  - DRUG PRESCRIBING ERROR [None]
  - INTERCEPTED MEDICATION ERROR [None]
